FAERS Safety Report 23751123 (Version 1)
Quarter: 2024Q2

REPORT INFORMATION
  Report Type: Other
  Country: US (occurrence: None)
  Receive Date: 20240417
  Receipt Date: 20240417
  Transmission Date: 20240716
  Serious: No
  Sender: FDA-Public Use
  Company Number: US-ROCHE-2581669

PATIENT
  Age: 50 Year
  Sex: Male
  Weight: 90.8 kg

DRUGS (3)
  1. OCREVUS [Suspect]
     Active Substance: OCRELIZUMAB
     Indication: Secondary progressive multiple sclerosis
     Dosage: ONGOING: YES
     Route: 042
     Dates: start: 20191223
  2. NEURONTIN [Concomitant]
     Active Substance: GABAPENTIN
  3. VALACYCLOVIR HYDROCHLORIDE [Concomitant]
     Active Substance: VALACYCLOVIR HYDROCHLORIDE

REACTIONS (11)
  - Influenza [Recovered/Resolved]
  - Night sweats [Recovered/Resolved]
  - Sensitive skin [Recovered/Resolved]
  - Lethargy [Recovered/Resolved]
  - Thirst [Recovered/Resolved]
  - Miliaria [Recovered/Resolved]
  - Pruritus [Recovered/Resolved]
  - Muscle spasms [Not Recovered/Not Resolved]
  - Visual impairment [Not Recovered/Not Resolved]
  - Astigmatism [Recovered/Resolved]
  - B-lymphocyte count decreased [Not Recovered/Not Resolved]
